FAERS Safety Report 6594267-1 (Version None)
Quarter: 2010Q1

REPORT INFORMATION
  Report Type: 
  Country: None (occurrence: None)
  Receive Date: 20100222
  Receipt Date: 20100217
  Transmission Date: 20100710
  Serious: Yes (Death, Hospitalization)
  Sender: FDA-Public Use
  Company Number: US-BRISTOL-MYERS SQUIBB COMPANY-14945059

PATIENT
  Age: 84 Year
  Sex: Male
  Weight: 63 kg

DRUGS (12)
  1. COUMADIN [Suspect]
     Indication: ATRIAL FIBRILLATION
     Dosage: 1 DF=2.5MG TWO DAYS A WEEK ALTERNATING WITH 1.25MG FIVE DAYS A WEEK INITIAL DOSE:2.5MG
     Dates: start: 19800101
  2. COUMADIN [Suspect]
     Indication: CARDIOMYOPATHY
     Dosage: 1 DF=2.5MG TWO DAYS A WEEK ALTERNATING WITH 1.25MG FIVE DAYS A WEEK INITIAL DOSE:2.5MG
     Dates: start: 19800101
  3. COUMADIN [Suspect]
     Indication: CEREBROVASCULAR ACCIDENT
     Dosage: 1 DF=2.5MG TWO DAYS A WEEK ALTERNATING WITH 1.25MG FIVE DAYS A WEEK INITIAL DOSE:2.5MG
     Dates: start: 19800101
  4. DUONEB [Concomitant]
  5. ALBUTEROL [Concomitant]
  6. LASIX [Concomitant]
  7. FLOVENT [Concomitant]
  8. ISOSORBIDE [Concomitant]
  9. METOPROLOL TARTRATE [Concomitant]
  10. SIMVASTATIN [Concomitant]
  11. LISINOPRIL [Concomitant]
  12. VITAMIN B-12 [Concomitant]

REACTIONS (6)
  - CARDIAC FAILURE CONGESTIVE [None]
  - CHRONIC OBSTRUCTIVE PULMONARY DISEASE [None]
  - DEATH [None]
  - DYSPNOEA [None]
  - INTERNATIONAL NORMALISED RATIO DECREASED [None]
  - PNEUMONIA [None]
